FAERS Safety Report 23181489 (Version 1)
Quarter: 2023Q4

REPORT INFORMATION
  Report Type: Spontaneous
  Country: US (occurrence: US)
  Receive Date: 20231114
  Receipt Date: 20231114
  Transmission Date: 20240110
  Serious: Yes (Death, Life-Threatening, Hospitalization, Other)
  Sender: FDA-Public Use
  Company Number: US-HIKMA PHARMACEUTICALS-US-H14001-23-66760

PATIENT
  Age: 47 Year
  Sex: Male
  Weight: 84 kg

DRUGS (22)
  1. BEVACIZUMAB [Suspect]
     Active Substance: BEVACIZUMAB
     Indication: Colorectal cancer
     Dosage: 455 MILLIGRAM, SINGLE DOSE
     Route: 041
     Dates: start: 20220118, end: 20220613
  2. BEVACIZUMAB [Suspect]
     Active Substance: BEVACIZUMAB
     Dosage: SINGLE DOSE
     Route: 041
     Dates: start: 20220613, end: 20220613
  3. BEVACIZUMAB [Suspect]
     Active Substance: BEVACIZUMAB
     Dosage: SINGLE DOSE
     Route: 041
  4. ETRUMADENANT [Suspect]
     Active Substance: ETRUMADENANT
     Indication: Colorectal cancer
     Dosage: 150 MILLIGRAM, SINGLE DOSE
     Route: 048
     Dates: start: 20220118, end: 20220214
  5. FLUOROURACIL [Suspect]
     Active Substance: FLUOROURACIL
     Dosage: 4728 MILLIGRAM
     Route: 041
     Dates: start: 20220718, end: 20220718
  6. FLUOROURACIL [Suspect]
     Active Substance: FLUOROURACIL
     Indication: Colorectal cancer
     Dosage: 5040 MILLIGRAM, SINGLE
     Route: 041
     Dates: start: 20220118, end: 20220613
  7. LEUCOVORIN [Suspect]
     Active Substance: LEUCOVORIN\LEUCOVORIN CALCIUM
     Dosage: 400 MILLIGRAM
     Route: 065
     Dates: start: 20220118
  8. LEUCOVORIN [Suspect]
     Active Substance: LEUCOVORIN\LEUCOVORIN CALCIUM
     Indication: Colorectal cancer
     Dosage: 400 MILLIGRAM, SINGLE
     Route: 041
     Dates: start: 20220118, end: 20220613
  9. OXALIPLATIN [Suspect]
     Active Substance: OXALIPLATIN
     Dosage: 143 MILLIGRAM, SINGLE DOSE
     Route: 041
     Dates: start: 20220215, end: 20220613
  10. OXALIPLATIN [Suspect]
     Active Substance: OXALIPLATIN
     Indication: Colorectal cancer
     Dosage: 179 MILLIGRAM, SINGLE DOSE
     Route: 041
     Dates: start: 20220118, end: 20220118
  11. OXALIPLATIN [Suspect]
     Active Substance: OXALIPLATIN
     Dosage: 179 MILLIGRAM, SINGLE DOSE
     Route: 041
     Dates: start: 20220201, end: 20220201
  12. OXALIPLATIN [Suspect]
     Active Substance: OXALIPLATIN
     Dosage: SINGLE DOSE
     Route: 041
     Dates: start: 20220613, end: 20220613
  13. OXALIPLATIN [Suspect]
     Active Substance: OXALIPLATIN
     Dosage: SINGLE DOSE
     Route: 041
  14. ZIMBERELIMAB [Suspect]
     Active Substance: ZIMBERELIMAB
     Indication: Colorectal cancer
     Dosage: 480 MILLIGRAM, SINGLE DOSE
     Route: 041
     Dates: start: 20220118, end: 20220613
  15. ACETAMINOPHEN [Concomitant]
     Active Substance: ACETAMINOPHEN
     Indication: Adverse event
     Dosage: UNKNOWN
     Route: 065
     Dates: start: 20220217
  16. DEXAMETHASONE [Concomitant]
     Active Substance: DEXAMETHASONE
     Indication: Prophylaxis
     Dosage: UNK
     Route: 065
     Dates: start: 20220118
  17. DEXTROSE\SODIUM CHLORIDE [Concomitant]
     Active Substance: DEXTROSE\SODIUM CHLORIDE
     Indication: Premedication
     Dosage: UNK
     Route: 065
  18. DIPHENHYDRAMINE [Concomitant]
     Active Substance: DIPHENHYDRAMINE
     Indication: Prophylaxis
     Dosage: UNKNOWN
     Route: 065
     Dates: start: 20220215
  19. IBUPROFEN [Concomitant]
     Active Substance: IBUPROFEN
     Indication: Adverse event
     Dosage: UNKNOWN
     Route: 065
     Dates: start: 20220411
  20. POTASSIUM CHLORIDE [Concomitant]
     Active Substance: POTASSIUM CHLORIDE
     Indication: Prophylaxis
     Dosage: UNK
     Route: 065
     Dates: start: 20210101
  21. SODIUM CHLORIDE [Concomitant]
     Active Substance: SODIUM CHLORIDE
     Indication: Premedication
     Dosage: UNK
     Route: 065
     Dates: start: 20220118
  22. XARELTO [Concomitant]
     Active Substance: RIVAROXABAN
     Indication: Product used for unknown indication
     Dosage: UNKNOWN
     Route: 065
     Dates: start: 20200701

REACTIONS (22)
  - Disease progression [Fatal]
  - Acute kidney injury [Recovered/Resolved with Sequelae]
  - Platelet count decreased [Recovered/Resolved]
  - Nausea [Unknown]
  - Abdominal pain [Unknown]
  - Diarrhoea [Unknown]
  - Vomiting [Unknown]
  - Epistaxis [Unknown]
  - Haemoptysis [Unknown]
  - Oedema peripheral [Unknown]
  - Contusion [Unknown]
  - Neutropenia [Unknown]
  - Metabolic acidosis [Unknown]
  - Hyponatraemia [Unknown]
  - Hypokalaemia [Unknown]
  - Hypoalbuminaemia [Unknown]
  - Lymphopenia [Unknown]
  - Hypermagnesaemia [Unknown]
  - Thrombocytopenia [Unknown]
  - Gastrointestinal haemorrhage [Unknown]
  - Renal tubular necrosis [Unknown]
  - Dehydration [Unknown]

NARRATIVE: CASE EVENT DATE: 20220613
